FAERS Safety Report 8959719 (Version 1)
Quarter: 2012Q4

REPORT INFORMATION
  Report Type: 
  Country: US (occurrence: US)
  Receive Date: 20121212
  Receipt Date: 20121212
  Transmission Date: 20130627
  Serious: No
  Sender: FDA-Public Use
  Company Number: US-009507513-1212USA002193

PATIENT
  Age: 32 Year
  Sex: Female

DRUGS (2)
  1. CLARITIN-D 24 HOUR [Suspect]
     Indication: NASAL CONGESTION
     Dosage: 10 mg, hs
     Route: 048
  2. CLARITIN-D 24 HOUR [Suspect]
     Indication: HYPERSENSITIVITY

REACTIONS (2)
  - Discomfort [Unknown]
  - Drug effect decreased [Unknown]
